FAERS Safety Report 4617032-0 (Version None)
Quarter: 2005Q1

REPORT INFORMATION
  Report Type: 
  Country: None (occurrence: None)
  Receive Date: 20050323
  Receipt Date: 20050224
  Transmission Date: 20050727
  Serious: Yes (Other)
  Sender: FDA-Public Use
  Company Number: PHEH2005US02700

PATIENT

DRUGS (1)
  1. FORADIL [Suspect]

REACTIONS (2)
  - GLAUCOMA [None]
  - OCULAR HYPERTENSION [None]
